FAERS Safety Report 6315162-9 (Version None)
Quarter: 2009Q3

REPORT INFORMATION
  Report Type: 
  Country: None (occurrence: None)
  Receive Date: 20090819
  Receipt Date: 20090813
  Transmission Date: 20100115
  Serious: Yes (Hospitalization)
  Sender: FDA-Public Use
  Company Number: ES-JNJFOC-20090803942

PATIENT

DRUGS (1)
  1. RISPERDAL [Suspect]
     Indication: MENTAL DISORDER
     Route: 048

REACTIONS (1)
  - HOSPITALISATION [None]
